FAERS Safety Report 23189936 (Version 1)
Quarter: 2023Q4

REPORT INFORMATION
  Report Type: Spontaneous
  Country: HR (occurrence: HR)
  Receive Date: 20231116
  Receipt Date: 20231116
  Transmission Date: 20240110
  Serious: Yes (Hospitalization, Other)
  Sender: FDA-Public Use
  Company Number: HR-ABBVIE-5491301

PATIENT
  Age: 73 Year
  Sex: Female

DRUGS (1)
  1. RINVOQ [Suspect]
     Active Substance: UPADACITINIB
     Indication: Rheumatoid arthritis
     Route: 048
     Dates: start: 202007

REACTIONS (5)
  - Tooth abscess [Recovered/Resolved]
  - Radius fracture [Unknown]
  - Tooth disorder [Unknown]
  - Fall [Unknown]
  - Ulna fracture [Unknown]

NARRATIVE: CASE EVENT DATE: 20210613
